FAERS Safety Report 6774657-4 (Version None)
Quarter: 2010Q2

REPORT INFORMATION
  Report Type: 
  Country: None (occurrence: None)
  Receive Date: 20100617
  Receipt Date: 20100602
  Transmission Date: 20101027
  Serious: Yes (Hospitalization, Other)
  Sender: FDA-Public Use
  Company Number: US-BAYER-200941344NA

PATIENT
  Age: 31 Year
  Sex: Female
  Weight: 100 kg

DRUGS (9)
  1. YAZ [Suspect]
     Indication: CONTRACEPTION
     Dates: start: 20040101, end: 20090101
  2. YASMIN [Suspect]
     Indication: CONTRACEPTION
     Dates: start: 20040101, end: 20090101
  3. IBUPROFEN [Concomitant]
     Indication: DRUG USE FOR UNKNOWN INDICATION
  4. POTASSIUM [Concomitant]
     Indication: DRUG USE FOR UNKNOWN INDICATION
  5. UNKNOWN DRUG [Concomitant]
     Indication: ASTHMA
  6. ALBUTEROL [Concomitant]
     Indication: DRUG USE FOR UNKNOWN INDICATION
     Dates: start: 20000101
  7. ALLEGRA [Concomitant]
     Indication: DRUG USE FOR UNKNOWN INDICATION
     Dates: start: 20000101
  8. CLARITIN [Concomitant]
     Indication: DRUG USE FOR UNKNOWN INDICATION
     Dates: start: 20000101
  9. UNKNOWN DRUG [Concomitant]
     Indication: MEDICAL DIET

REACTIONS (3)
  - DEPRESSION [None]
  - GALLBLADDER INJURY [None]
  - PAIN [None]
